FAERS Safety Report 12010607 (Version 1)
Quarter: 2016Q1

REPORT INFORMATION
  Report Type: Spontaneous
  Country: US (occurrence: US)
  Receive Date: 20160205
  Receipt Date: 20160205
  Transmission Date: 20160526
  Serious: No
  Sender: FDA-Public Use
  Company Number: US-SHIRE-US201600814

PATIENT
  Sex: Female
  Weight: 62 kg

DRUGS (1)
  1. GATTEX [Suspect]
     Active Substance: TEDUGLUTIDE\WATER
     Indication: SHORT-BOWEL SYNDROME
     Dosage: 0.31 ML, 1X/DAY:QD
     Route: 058
     Dates: start: 201508

REACTIONS (1)
  - Drug ineffective [Unknown]
